FAERS Safety Report 25605854 (Version 2)
Quarter: 2025Q3

REPORT INFORMATION
  Report Type: Spontaneous
  Country: US (occurrence: US)
  Receive Date: 20250725
  Receipt Date: 20250811
  Transmission Date: 20251020
  Serious: No
  Sender: GALDERMA
  Company Number: US-GALDERMA-US2025012334

PATIENT

DRUGS (1)
  1. DIFFERIN GEL [Suspect]
     Active Substance: ADAPALENE
     Indication: Product used for unknown indication
     Route: 061

REACTIONS (5)
  - Erythema [Unknown]
  - Eczema [Unknown]
  - Rash macular [Unknown]
  - Dry skin [Unknown]
  - Skin exfoliation [Unknown]
